FAERS Safety Report 5785980-4 (Version None)
Quarter: 2008Q2

REPORT INFORMATION
  Report Type: 
  Country: None (occurrence: None)
  Receive Date: 20080624
  Receipt Date: 20080617
  Transmission Date: 20081010
  Serious: Yes (Life-Threatening, Hospitalization, Other)
  Sender: FDA-Public Use
  Company Number: PHBS2008CH01805

PATIENT
  Sex: Female

DRUGS (8)
  1. RASILEZ [Suspect]
     Indication: HYPERTENSION
     Dosage: 150 MG/D
     Route: 048
     Dates: start: 20080118
  2. RASILEZ [Suspect]
     Dosage: 300 MG/D
     Route: 048
     Dates: start: 20080119, end: 20080122
  3. VOLTAREN [Suspect]
     Dosage: 50-150 MG/DAY
  4. ALDACTONE [Suspect]
     Indication: HYPERTENSION
     Dosage: 12.5 MG/D
     Dates: end: 20080118
  5. ALDACTONE [Suspect]
     Dosage: 25MG/DAY
     Dates: start: 20080119
  6. NORVASC [Concomitant]
     Indication: HYPERTENSION
     Dosage: 5MG/DAY
  7. TOREM [Concomitant]
     Indication: HYPERTENSION
     Dosage: 10 MG/DAY
  8. COAPROVEL [Concomitant]
     Dosage: 300/25 MG/D
     Dates: end: 20080118

REACTIONS (14)
  - BLOOD CREATININE INCREASED [None]
  - BLOOD POTASSIUM INCREASED [None]
  - BLOOD PRESSURE INADEQUATELY CONTROLLED [None]
  - CATHETER REMOVAL [None]
  - DYSPNOEA EXERTIONAL [None]
  - HYPERKALAEMIA [None]
  - HYPERVENTILATION [None]
  - KIDNEY SMALL [None]
  - METABOLIC ACIDOSIS [None]
  - OLIGURIA [None]
  - RENAL ARTERY STENOSIS [None]
  - RENAL FAILURE ACUTE [None]
  - RENAL FUNCTION TEST ABNORMAL [None]
  - RENAL IMPAIRMENT [None]
